FAERS Safety Report 9012511 (Version 2)
Quarter: 2013Q1

REPORT INFORMATION
  Report Type: Spontaneous
  Country: US (occurrence: US)
  Receive Date: 20130114
  Receipt Date: 20130214
  Transmission Date: 20140127
  Serious: No
  Sender: FDA-Public Use
  Company Number: US-PFIZER INC-2013014855

PATIENT
  Sex: Female

DRUGS (2)
  1. CHILDREN^S DIMETAPP COLD AND ALLERGY [Suspect]
     Dosage: UNK
  2. ZITHROMAX [Suspect]
     Dosage: UNK

REACTIONS (3)
  - Cardiac disorder [Recovered/Resolved]
  - Feeling cold [Recovered/Resolved]
  - Oral disorder [Recovered/Resolved]
